FAERS Safety Report 4469663-9 (Version None)
Quarter: 2004Q3

REPORT INFORMATION
  Report Type: 
  Country: None (occurrence: None)
  Receive Date: 20040917
  Receipt Date: 20031103
  Transmission Date: 20050211
  Serious: Yes (Hospitalization)
  Sender: FDA-Public Use
  Company Number: 2000-BP-01803(3)

PATIENT
  Age: 38 Year
  Sex: Male

DRUGS (3)
  1. VIRAMUNE [Suspect]
     Indication: EXPOSURE TO COMMUNICABLE DISEASE
     Dosage: 400 MG (200 MG, 1 TABLET BID), PO
     Route: 048
  2. VIRAMUNE [Suspect]
     Indication: PROPHYLAXIS
     Dosage: 400 MG (200 MG, 1 TABLET BID), PO
     Route: 048
  3. COMBIVIR [Concomitant]

REACTIONS (1)
  - HEPATITIS FULMINANT [None]
